FAERS Safety Report 16188201 (Version 1)
Quarter: 2019Q2

REPORT INFORMATION
  Report Type: Spontaneous
  Country: GR (occurrence: GR)
  Receive Date: 20190412
  Receipt Date: 20190412
  Transmission Date: 20190711
  Serious: Yes (Other)
  Sender: FDA-Public Use
  Company Number: GR-ASTELLAS-2019US015680

PATIENT
  Age: 37 Year
  Sex: Male

DRUGS (9)
  1. CLOXACILLIN [Suspect]
     Active Substance: CLOXACILLIN
     Dosage: 2 G, EVERY 4 HOURS
     Route: 042
  2. RIFAMPICIN [Suspect]
     Active Substance: RIFAMPIN
     Indication: ANTIBIOTIC THERAPY
     Route: 042
  3. VANCOMYCIN HYDROCHLORIDE. [Suspect]
     Active Substance: VANCOMYCIN HYDROCHLORIDE
     Indication: STAPHYLOCOCCAL INFECTION
     Dosage: UNK UNK, UNKNOWN FREQ.
     Route: 065
  4. PIPERACILLIN AND TAZOBACTAM [Suspect]
     Active Substance: PIPERACILLIN SODIUM\TAZOBACTAM SODIUM
     Indication: ANTIBIOTIC THERAPY
     Route: 042
  5. DAPTOMYCIN. [Suspect]
     Active Substance: DAPTOMYCIN
     Indication: ANTIBIOTIC THERAPY
     Dosage: 500 MG PER 48 HOURS
     Route: 042
  6. MICAFUNGIN. [Suspect]
     Active Substance: MICAFUNGIN SODIUM
     Indication: ANTIBIOTIC THERAPY
     Route: 042
  7. CLOXACILLIN [Suspect]
     Active Substance: CLOXACILLIN
     Indication: ANTIBIOTIC THERAPY
     Dosage: 500 MG, EVERY 4 HOURS
     Route: 042
  8. LINEZOLID. [Suspect]
     Active Substance: LINEZOLID
     Indication: ANTIBIOTIC THERAPY
     Route: 042
  9. CEFTRIAXONE. [Suspect]
     Active Substance: CEFTRIAXONE
     Indication: ANTIBIOTIC THERAPY
     Dosage: UNK UNK, UNKNOWN FREQ.
     Route: 065

REACTIONS (8)
  - Dyspnoea [Unknown]
  - Oliguria [Unknown]
  - Endocarditis staphylococcal [Unknown]
  - Condition aggravated [Unknown]
  - Oxygen saturation decreased [Unknown]
  - Restlessness [Unknown]
  - Oedema peripheral [Unknown]
  - Sleep disorder [Unknown]
